FAERS Safety Report 7470611-8 (Version None)
Quarter: 2011Q2

REPORT INFORMATION
  Report Type: 
  Country: None (occurrence: None)
  Receive Date: 20110510
  Receipt Date: 20110506
  Transmission Date: 20111010
  Serious: No
  Sender: FDA-Public Use
  Company Number: US-TEVA-280617USA

PATIENT
  Sex: Male

DRUGS (2)
  1. PROAIR HFA [Suspect]
     Route: 055
  2. SERETIDE [Concomitant]

REACTIONS (1)
  - DRUG SCREEN POSITIVE [None]
